FAERS Safety Report 9668012 (Version 2)
Quarter: 2013Q4

REPORT INFORMATION
  Report Type: Report from Study
  Country: JP (occurrence: JP)
  Receive Date: 20131104
  Receipt Date: 20131119
  Transmission Date: 20140711
  Serious: Yes (Hospitalization)
  Sender: FDA-Public Use
  Company Number: JP-GLAXOSMITHKLINE-B0938521A

PATIENT
  Age: 74 Year
  Sex: Female

DRUGS (1)
  1. GSK1120212 [Suspect]
     Indication: BILE DUCT CANCER
     Dosage: 2MG PER DAY
     Route: 048
     Dates: start: 20131021

REACTIONS (1)
  - Cholangitis [Recovered/Resolved]
